FAERS Safety Report 11621395 (Version 1)
Quarter: 2015Q4

REPORT INFORMATION
  Report Type: Other
  Country: DE (occurrence: US)
  Receive Date: 20151012
  Receipt Date: 20151012
  Transmission Date: 20160304
  Serious: Yes (Death, Hospitalization)
  Sender: FDA-Public Use
  Company Number: US-FRI-1000080026

PATIENT
  Age: 88 Year
  Sex: Female

DRUGS (9)
  1. HALOPERIDOL. [Suspect]
     Active Substance: HALOPERIDOL
     Indication: CONFUSIONAL STATE
  2. HALOPERIDOL. [Suspect]
     Active Substance: HALOPERIDOL
     Indication: AGITATION
  3. MANY OTHERS [Suspect]
     Active Substance: UNSPECIFIED INGREDIENT
     Indication: CONFUSIONAL STATE
  4. LORAZEPAM. [Suspect]
     Active Substance: LORAZEPAM
     Indication: CONFUSIONAL STATE
  5. FLEXERIL [Concomitant]
     Active Substance: CYCLOBENZAPRINE HYDROCHLORIDE
  6. MANY OTHERS [Suspect]
     Active Substance: UNSPECIFIED INGREDIENT
     Indication: AGITATION
  7. LORAZEPAM. [Suspect]
     Active Substance: LORAZEPAM
     Indication: AGITATION
  8. MEMANTINE. [Suspect]
     Active Substance: MEMANTINE
     Indication: CONFUSIONAL STATE
  9. MEMANTINE. [Suspect]
     Active Substance: MEMANTINE
     Indication: AGITATION

REACTIONS (7)
  - General physical health deterioration [Unknown]
  - Nosocomial infection [Fatal]
  - Infection [Fatal]
  - Delirium [Unknown]
  - Condition aggravated [Unknown]
  - Off label use [Unknown]
  - Malnutrition [Unknown]
